FAERS Safety Report 14987289 (Version 1)
Quarter: 2018Q2

REPORT INFORMATION
  Report Type: Spontaneous
  Country: BR (occurrence: BR)
  Receive Date: 20180608
  Receipt Date: 20180608
  Transmission Date: 20180711
  Serious: Yes (Other)
  Sender: FDA-Public Use
  Company Number: BR-AMGEN-BRASP2018075820

PATIENT
  Age: 30 Year
  Sex: Female

DRUGS (1)
  1. ENBREL [Suspect]
     Active Substance: ETANERCEPT
     Indication: PRODUCT USED FOR UNKNOWN INDICATION
     Dosage: UNK
     Route: 065

REACTIONS (8)
  - Peripheral swelling [Not Recovered/Not Resolved]
  - Helicobacter gastritis [Not Recovered/Not Resolved]
  - Drug ineffective [Unknown]
  - Joint injury [Not Recovered/Not Resolved]
  - Oesophageal disorder [Not Recovered/Not Resolved]
  - Loss of personal independence in daily activities [Not Recovered/Not Resolved]
  - Gastrooesophageal reflux disease [Not Recovered/Not Resolved]
  - Foot deformity [Not Recovered/Not Resolved]
